FAERS Safety Report 10470323 (Version 3)
Quarter: 2015Q2

REPORT INFORMATION
  Report Type: Spontaneous
  Country: US (occurrence: US)
  Receive Date: 20140923
  Receipt Date: 20150528
  Transmission Date: 20150821
  Serious: Yes (Hospitalization, Other)
  Sender: FDA-Public Use
  Company Number: US-PFIZER INC-2014258770

PATIENT
  Sex: Female

DRUGS (1)
  1. REVATIO [Suspect]
     Active Substance: SILDENAFIL CITRATE
     Dosage: UNK

REACTIONS (9)
  - Insomnia [Unknown]
  - Diabetes mellitus [Unknown]
  - Cardiac fibrillation [Unknown]
  - Cardiac disorder [Unknown]
  - Arthropathy [Unknown]
  - Fatigue [Unknown]
  - Malaise [Unknown]
  - Thrombosis [Unknown]
  - Gait disturbance [Unknown]
